FAERS Safety Report 20378413 (Version 3)
Quarter: 2022Q1

REPORT INFORMATION
  Report Type: Spontaneous
  Country: US (occurrence: US)
  Receive Date: 20220126
  Receipt Date: 20220308
  Transmission Date: 20220423
  Serious: No
  Sender: FDA-Public Use
  Company Number: US-PFIZER INC-202200113718

PATIENT
  Age: 54 Year
  Sex: Female
  Weight: 95.25 kg

DRUGS (2)
  1. PAXLOVID [Suspect]
     Active Substance: NIRMATRELVIR\RITONAVIR
     Dosage: [PF-07321332 300 MG]/[RITONAVIR 100 MG]; 2X/DAY
     Dates: start: 20220118
  2. MUCINEX FAST MAX SEVERE CONGESTION + COLD [Concomitant]
     Indication: Nasal congestion
     Dosage: UNK

REACTIONS (2)
  - Dysgeusia [Recovering/Resolving]
  - Therapeutic response unexpected [Unknown]

NARRATIVE: CASE EVENT DATE: 20220101
